FAERS Safety Report 14924328 (Version 3)
Quarter: 2018Q3

REPORT INFORMATION
  Report Type: Spontaneous
  Country: JP (occurrence: JP)
  Receive Date: 20180522
  Receipt Date: 20180903
  Transmission Date: 20181010
  Serious: Yes (Hospitalization, Other)
  Sender: FDA-Public Use
  Company Number: JP-VIIV HEALTHCARE LIMITED-JP2018JPN081688

PATIENT
  Age: 5 Decade
  Sex: Male

DRUGS (15)
  1. THYRADIN S [Concomitant]
     Active Substance: LEVOTHYROXINE SODIUM
     Dosage: UNK
  2. MYCOBUTIN [Concomitant]
     Active Substance: RIFABUTIN
     Dosage: UNK
  3. DESCOVY [Concomitant]
     Active Substance: EMTRICITABINE\TENOFOVIR ALAFENAMIDE FUMARATE
     Indication: HIV INFECTION
     Dosage: 1 DF, QD
     Dates: start: 201803
  4. VITAMEDIN [Concomitant]
     Active Substance: CYANOCOBALAMIN\PYRIDOXINE HYDROCHLORIDE\THIAMINE
     Dosage: UNK
  5. TIVICAY [Suspect]
     Active Substance: DOLUTEGRAVIR SODIUM
     Indication: HIV INFECTION
     Dosage: 50 MG, QD
     Route: 048
     Dates: start: 201803
  6. QUETIAPINE. [Concomitant]
     Active Substance: QUETIAPINE
     Dosage: UNK
  7. CLARITHROMYCIN. [Concomitant]
     Active Substance: CLARITHROMYCIN
     Dosage: UNK
  8. CRAVIT [Concomitant]
     Active Substance: LEVOFLOXACIN
     Dosage: UNK
  9. DEPAKENE [Concomitant]
     Active Substance: VALPROIC ACID
     Dosage: UNK
  10. AZITHROMYCIN HYDRATE [Concomitant]
     Active Substance: AZITHROMYCIN DIHYDRATE
     Indication: INFECTION PROPHYLAXIS
     Dosage: 1250 MG, WE
  11. NEXIUM [Concomitant]
     Active Substance: ESOMEPRAZOLE MAGNESIUM
     Dosage: UNK
  12. SAMTIREL [Concomitant]
     Active Substance: ATOVAQUONE
     Dosage: UNK
  13. BROTIZOLAM [Concomitant]
     Active Substance: BROTIZOLAM
     Dosage: UNK
  14. TRAZODONE HYDROCHLORIDE. [Concomitant]
     Active Substance: TRAZODONE HYDROCHLORIDE
     Dosage: UNK
  15. CLEAMINE [Concomitant]
     Dosage: UNK

REACTIONS (5)
  - Treatment noncompliance [Unknown]
  - Vomiting [Recovered/Resolved]
  - Drug effect incomplete [Not Recovered/Not Resolved]
  - Immune reconstitution inflammatory syndrome [Recovering/Resolving]
  - Mycobacterium avium complex infection [Recovering/Resolving]

NARRATIVE: CASE EVENT DATE: 201803
